FAERS Safety Report 23159887 (Version 4)
Quarter: 2023Q4

REPORT INFORMATION
  Report Type: Report from Study
  Country: BR (occurrence: BR)
  Receive Date: 20231108
  Receipt Date: 20231211
  Transmission Date: 20240110
  Serious: Yes (Disabling, Other)
  Sender: FDA-Public Use
  Company Number: BR-002147023-NVSC2023BR238082

PATIENT
  Age: 53 Year
  Sex: Female
  Weight: 92 kg

DRUGS (13)
  1. ENTRESTO [Interacting]
     Active Substance: SACUBITRIL\VALSARTAN
     Indication: Cardiac failure
     Dosage: 100 MG, BID
     Route: 048
  2. ENTRESTO [Interacting]
     Active Substance: SACUBITRIL\VALSARTAN
     Dosage: 1 DOSAGE FORM, BID (TABLET  50MG), (28 DAYS AFTER THE BEGINNING)
     Route: 048
  3. ENTRESTO [Interacting]
     Active Substance: SACUBITRIL\VALSARTAN
     Dosage: 1 DOSAGE FORM, BID (TABLET 100MG), (3 MONTHS  AGO)
     Route: 048
  4. ENTRESTO [Interacting]
     Active Substance: SACUBITRIL\VALSARTAN
     Dosage: 100 MG, BID
     Route: 048
  5. JARDIANCE [Concomitant]
     Active Substance: EMPAGLIFLOZIN
     Indication: Cardiac failure
     Dosage: 1 DOSAGEFORM, QD (1 TABLET ONCE PER DAY) (34 MONTHS AGO)
     Route: 048
  6. FLUOXETINE [Concomitant]
     Active Substance: FLUOXETINE HYDROCHLORIDE
     Indication: Anxiety
     Dosage: 1 DOSAGEFORM, BID (1 TABLET TWICE PER DAY) (30 YEARS AGO)
     Route: 048
  7. SPIRONOLACTONE [Concomitant]
     Active Substance: SPIRONOLACTONE
     Indication: Polyuria
     Dosage: 1 DOSAGEFORM, BID (1 TABLET ONCE PER DAY) (MANY YEARS AGO)
     Route: 048
  8. VENAFLON [Concomitant]
     Indication: Cardiovascular insufficiency
     Dosage: 1 DOSAGEFORM, BID (1 TABLET TWICE PER DAY) (MANY YEARS AGO)
     Route: 048
  9. BISOPROLOL FUMARATE [Concomitant]
     Active Substance: BISOPROLOL FUMARATE
     Indication: Cardiac disorder
     Dosage: 1 DOSAGEFORM, BID (1 TABLET ONCE PER DAY) (MANY YEARS AGO)
     Route: 048
  10. ATORVASTATIN [Concomitant]
     Active Substance: ATORVASTATIN
     Indication: Blood cholesterol abnormal
     Dosage: 2 DOSAGEFORM, BID (2 TABLETS ONCE PER DAY) (MANY YEARS AGO)
     Route: 048
  11. CIPROFIBRATE [Concomitant]
     Active Substance: CIPROFIBRATE
     Indication: Blood triglycerides abnormal
     Dosage: 1 DOSAGEFORM, BID (1 TABLET ONCE PER DAY) (MANY YEARS AGO)
     Route: 048
  12. BRIMONIDINE [Concomitant]
     Active Substance: BRIMONIDINE TARTRATE
     Indication: Glaucoma
     Dosage: 1 DRP, BID (2% - 1 DROP EACH EYE TWICE PER DAY) (MANY YEARS AGO)
     Route: 047
  13. TRAVOPROST [Concomitant]
     Active Substance: TRAVOPROST
     Indication: Glaucoma
     Dosage: 1 DROP EACH EYE ONCE PER DAY QD(STARTED MANY YEARS AGO)
     Route: 065

REACTIONS (10)
  - Furuncle [Recovering/Resolving]
  - Arteriosclerosis [Recovering/Resolving]
  - Fall [Not Recovered/Not Resolved]
  - Neck injury [Unknown]
  - Dizziness [Unknown]
  - Visual impairment [Unknown]
  - Drug interaction [Unknown]
  - Pain [Recovering/Resolving]
  - Weight decreased [Not Recovered/Not Resolved]
  - Movement disorder [Recovering/Resolving]

NARRATIVE: CASE EVENT DATE: 20231031
